FAERS Safety Report 6074905-2 (Version None)
Quarter: 2009Q1

REPORT INFORMATION
  Report Type: 
  Country: None (occurrence: None)
  Receive Date: 20090212
  Receipt Date: 20090204
  Transmission Date: 20090719
  Serious: Yes (Hospitalization)
  Sender: FDA-Public Use
  Company Number: US-RB-009461-09

PATIENT
  Age: 43 Year
  Sex: Female

DRUGS (1)
  1. MUCINEX [Suspect]
     Dates: start: 20090202

REACTIONS (3)
  - DYSPNOEA [None]
  - RASH [None]
  - SWOLLEN TONGUE [None]
